FAERS Safety Report 24584784 (Version 1)
Quarter: 2024Q4

REPORT INFORMATION
  Report Type: Report from Study
  Country: FR (occurrence: FR)
  Receive Date: 20241106
  Receipt Date: 20241106
  Transmission Date: 20250115
  Serious: Yes (Other)
  Sender: PFIZER
  Company Number: FR-PFIZER INC-PV202400142766

PATIENT
  Sex: Female

DRUGS (3)
  1. TOFACITINIB [Suspect]
     Active Substance: TOFACITINIB
     Dosage: UNK (2 MONTHS)
  2. BARICITINIB [Suspect]
     Active Substance: BARICITINIB
     Dosage: 4 MG/DAY, 1.5 MONTH
  3. RUXOLITINIB [Suspect]
     Active Substance: RUXOLITINIB
     Dosage: UNK UNK, DAILY (1 MONTH, 38 MG/M2/DAY)

REACTIONS (1)
  - Haematotoxicity [Unknown]
